FAERS Safety Report 17439647 (Version 1)
Quarter: 2020Q1

REPORT INFORMATION
  Report Type: Spontaneous
  Country: US (occurrence: US)
  Receive Date: 20200220
  Receipt Date: 20200220
  Transmission Date: 20200409
  Serious: Yes (Hospitalization, Other)
  Sender: FDA-Public Use
  Company Number: US-ELI_LILLY_AND_COMPANY-US202002006281

PATIENT
  Age: 69 Year
  Sex: Male

DRUGS (6)
  1. LANTUS [Concomitant]
     Active Substance: INSULIN GLARGINE
     Indication: TYPE 2 DIABETES MELLITUS
     Dosage: 35 U, EACH EVENING (AT BEDTIME)
  2. HUMALOG KWIKPEN [Suspect]
     Active Substance: INSULIN LISPRO
     Dosage: 25 U, DAILY (AT LUNCH AND DINNER PLUS SLIDING SCALE)
     Route: 058
     Dates: start: 202001
  3. HUMALOG KWIKPEN [Suspect]
     Active Substance: INSULIN LISPRO
     Dosage: 23 U, EACH MORNING (AT BREAKFAST)
     Route: 058
  4. HUMALOG KWIKPEN [Suspect]
     Active Substance: INSULIN LISPRO
     Dosage: 25 U, DAILY (AT LUNCH AND DINNER PLUS SLIDING SCALE)
     Route: 058
  5. HUMALOG [Suspect]
     Active Substance: INSULIN LISPRO
     Indication: TYPE 2 DIABETES MELLITUS
     Dosage: 23 U, UNKNOWN (WITH MEALS)
     Route: 058
     Dates: end: 202001
  6. HUMALOG KWIKPEN [Suspect]
     Active Substance: INSULIN LISPRO
     Indication: TYPE 2 DIABETES MELLITUS
     Dosage: 23 U, EACH MORNING (AT BREAKFAST)
     Route: 058
     Dates: start: 202001

REACTIONS (6)
  - Thrombosis [Unknown]
  - Blood glucose decreased [Unknown]
  - Blood glucose increased [Recovering/Resolving]
  - Splenic vein thrombosis [Recovering/Resolving]
  - Vascular calcification [Unknown]
  - Erythropoiesis abnormal [Unknown]

NARRATIVE: CASE EVENT DATE: 20200210
